FAERS Safety Report 24610962 (Version 1)
Quarter: 2024Q4

REPORT INFORMATION
  Report Type: Spontaneous
  Country: US (occurrence: US)
  Receive Date: 20241112
  Receipt Date: 20241112
  Transmission Date: 20250115
  Serious: No
  Sender: SANOFI AVENTIS
  Company Number: US-SA-2024SA323614

PATIENT
  Sex: Female
  Weight: 116.36 kg

DRUGS (8)
  1. DUPIXENT [Suspect]
     Active Substance: DUPILUMAB
     Indication: Illness
     Dosage: 300 MG, QOW
     Route: 058
  2. COCONUT OIL [Concomitant]
     Active Substance: COCONUT OIL
  3. CINNAMON [Concomitant]
     Active Substance: CINNAMON
  4. ONE A DAY TEEN ADVANTAGE FOR HER [Concomitant]
  5. VITAMIN D3 [Concomitant]
     Active Substance: CHOLECALCIFEROL
  6. CALCIUM [Concomitant]
     Active Substance: CALCIUM
  7. VITAMIN C [Concomitant]
     Active Substance: ASCORBIC ACID
  8. MELOXICAM [Concomitant]
     Active Substance: MELOXICAM

REACTIONS (1)
  - Nasal polyps [Unknown]
